FAERS Safety Report 6135317-6 (Version None)
Quarter: 2009Q1

REPORT INFORMATION
  Report Type: 
  Country: None (occurrence: None)
  Receive Date: 20090327
  Receipt Date: 20081205
  Transmission Date: 20090719
  Serious: No
  Sender: FDA-Public Use
  Company Number: US-BRISTOL-MYERS SQUIBB COMPANY-14432355

PATIENT
  Age: 65 Year
  Sex: Male

DRUGS (1)
  1. SPRYCEL [Suspect]
     Dosage: REINTRODUCED ON 04DEC08
     Dates: start: 20081120

REACTIONS (5)
  - BACK PAIN [None]
  - CHILLS [None]
  - COUGH [None]
  - PAIN [None]
  - PYREXIA [None]
